FAERS Safety Report 11798685 (Version 1)
Quarter: 2015Q4

REPORT INFORMATION
  Report Type: Other
  Country: US (occurrence: US)
  Receive Date: 20151203
  Receipt Date: 20151203
  Transmission Date: 20160305
  Serious: Yes (Hospitalization)
  Sender: FDA-Public Use
  Company Number: US-GUERBET LLC-1045023

PATIENT

DRUGS (1)
  1. OXILAN [Suspect]
     Active Substance: IOXILAN
     Indication: PERCUTANEOUS CORONARY INTERVENTION

REACTIONS (1)
  - Atrial fibrillation [Recovered/Resolved]
